FAERS Safety Report 7554639-5 (Version None)
Quarter: 2011Q2

REPORT INFORMATION
  Report Type: 
  Country: None (occurrence: None)
  Receive Date: 20110617
  Receipt Date: 20110318
  Transmission Date: 20111010
  Serious: Yes (Hospitalization)
  Sender: FDA-Public Use
  Company Number: US-MYLANLABS-2011S1005955

PATIENT
  Sex: Female

DRUGS (9)
  1. ATENOLOL [Suspect]
     Indication: HYPERTENSION
     Route: 048
     Dates: start: 20080826
  2. BLINDED STUDY MEDICATION [Suspect]
     Dates: start: 20090115, end: 20090115
  3. BLINDED STUDY MEDICATION [Suspect]
     Dates: start: 20081008, end: 20081008
  4. SERTRALINE HYDROCHLORIDE [Concomitant]
     Indication: DEPRESSION
  5. NIFEDIPINE [Suspect]
     Indication: HYPERTENSION
     Route: 048
     Dates: start: 20050101
  6. FAMOTIDINE [Concomitant]
     Indication: GASTROOESOPHAGEAL REFLUX DISEASE
  7. HYDROCHLOROTHIAZIDE [Suspect]
     Indication: HYPERTENSION
     Route: 048
     Dates: start: 20080826
  8. ASPIRIN [Concomitant]
     Indication: CARDIOVASCULAR EVENT PROPHYLAXIS
  9. EXELON [Concomitant]
     Indication: DEMENTIA ALZHEIMER'S TYPE

REACTIONS (2)
  - ACCIDENTAL OVERDOSE [None]
  - HYPOTENSION [None]
